FAERS Safety Report 11536611 (Version 2)
Quarter: 2016Q3

REPORT INFORMATION
  Report Type: Spontaneous
  Country: GB (occurrence: GB)
  Receive Date: 20150922
  Receipt Date: 20160711
  Transmission Date: 20161109
  Serious: Yes (Death, Other)
  Sender: FDA-Public Use
  Company Number: GB-PFIZER INC-2015313701

PATIENT
  Age: 19 Month
  Sex: Male

DRUGS (2)
  1. METRONIDAZOLE. [Suspect]
     Active Substance: METRONIDAZOLE
     Indication: DIARRHOEA
     Dosage: 10 MG/KG, 4X/DAY (EVERY 6 HOURS)
     Route: 042
  2. METRONIDAZOLE. [Suspect]
     Active Substance: METRONIDAZOLE
     Dosage: 7.5 MG/KG, 4X/DAY (EVERY 6 HOURS)
     Route: 042

REACTIONS (2)
  - Acute hepatic failure [Fatal]
  - Toxicity to various agents [Fatal]
